FAERS Safety Report 8106507-8 (Version None)
Quarter: 2012Q1

REPORT INFORMATION
  Report Type: 
  Country: None (occurrence: None)
  Receive Date: 20120202
  Receipt Date: 20120125
  Transmission Date: 20120608
  Serious: Yes (Hospitalization)
  Sender: FDA-Public Use
  Company Number: US-BAYER-2011-096331

PATIENT
  Age: 20 Year
  Sex: Female

DRUGS (4)
  1. ACETAMINOPHEN AND HYDROCODONE BITARTRATE [Concomitant]
     Dosage: 5 MG/500 MG
     Dates: start: 20080930
  2. YASMIN [Suspect]
     Dosage: UNK
     Dates: start: 20080301
  3. DROSPIRENONE AND ETHINYL ESTRADIOL [Suspect]
     Dosage: UNK
     Dates: start: 20080301
  4. YAZ [Suspect]
     Dosage: UNK
     Dates: start: 20080301

REACTIONS (8)
  - PAIN [None]
  - CHOLECYSTITIS CHRONIC [None]
  - BILE DUCT STONE [None]
  - ANXIETY [None]
  - GALLBLADDER INJURY [None]
  - EMOTIONAL DISTRESS [None]
  - INJURY [None]
  - GENERAL PHYSICAL HEALTH DETERIORATION [None]
